FAERS Safety Report 9294713 (Version 1)
Quarter: 2013Q1

REPORT INFORMATION
  Report Type: Spontaneous
  Country: US (occurrence: None)
  Receive Date: 20121227
  Receipt Date: 20121227
  Transmission Date: 20140127
  Serious: Yes (Hospitalization)
  Sender: FDA-Public Use
  Company Number: PHEH2011US010256

PATIENT
  Age: 19 Year
  Sex: Female

DRUGS (4)
  1. MYFORTIC (MYCOPHENOLIC ACID) UNKNOWN [Suspect]
     Indication: PROPHYLAXIS AGAINST TRANSPLANT REJECTION
     Dates: start: 20071111
  2. MYFORTIC (MYCOPHENOLIC ACID) UNKNOWN [Suspect]
     Indication: GRAFT VERSUS HOST DISEASE
     Dates: start: 20071111
  3. PROGRAF (TACROLIMUS) [Suspect]
  4. AMBIEN (ZOLPIDEM TARTRATE) [Suspect]

REACTIONS (5)
  - Vomiting [None]
  - Nausea [None]
  - Feeling jittery [None]
  - Headache [None]
  - Tremor [None]
